FAERS Safety Report 5702491-2 (Version None)
Quarter: 2008Q2

REPORT INFORMATION
  Report Type: 
  Country: None (occurrence: None)
  Receive Date: 20080410
  Receipt Date: 20080410
  Transmission Date: 20081010
  Serious: No
  Sender: FDA-Public Use
  Company Number: None

PATIENT
  Age: 32 Year
  Sex: Male
  Weight: 176.9028 kg

DRUGS (2)
  1. LISINOPRIL AND HYDROCHLOROTHIAZIDE [Suspect]
     Indication: HYPERTENSION
     Dosage: 12.5 MG DAILY PO
     Route: 048
     Dates: start: 20080309, end: 20080408
  2. LISINOPRIL AND HYDROCHLOROTHIAZIDE [Suspect]
     Indication: LEFT VENTRICULAR HYPERTROPHY
     Dosage: 12.5 MG DAILY PO
     Route: 048
     Dates: start: 20080309, end: 20080408

REACTIONS (4)
  - DIZZINESS [None]
  - DRY MOUTH [None]
  - INSOMNIA [None]
  - PARAESTHESIA [None]
